FAERS Safety Report 9349183 (Version 1)
Quarter: 2013Q2

REPORT INFORMATION
  Report Type: Spontaneous
  Country: US (occurrence: US)
  Receive Date: 20130614
  Receipt Date: 20130614
  Transmission Date: 20140414
  Serious: Yes (Hospitalization)
  Sender: FDA-Public Use
  Company Number: US-TEVA-411325USA

PATIENT
  Age: 48 Year
  Sex: Female
  Weight: 163.44 kg

DRUGS (13)
  1. PROAIR HFA [Suspect]
     Indication: BRONCHITIS
     Route: 055
  2. PROAIR HFA [Suspect]
     Indication: ASTHMA
  3. ADVAIR [Concomitant]
     Indication: ASTHMA
     Dosage: 250/50
  4. ADVAIR [Concomitant]
     Indication: BRONCHITIS
  5. MULTIVITAMIN [Concomitant]
     Indication: VITAMIN SUPPLEMENTATION
  6. ASPIRIN [Concomitant]
  7. METOPROLOL [Concomitant]
     Indication: BLOOD PRESSURE
  8. LASIX [Concomitant]
     Indication: BLOOD PRESSURE
  9. RANITIDINE [Concomitant]
     Indication: GASTROOESOPHAGEAL REFLUX DISEASE
  10. HYDROCHLOROTHIAZIDE [Concomitant]
     Indication: BLOOD PRESSURE
  11. POTASSIUM CHLORIDE [Concomitant]
     Dosage: TWICE A DAY
  12. ALBUTEROL [Concomitant]
     Indication: DYSPNOEA
  13. BUSPIRONE [Concomitant]
     Indication: ANXIETY

REACTIONS (1)
  - Dyspnoea [Unknown]
